FAERS Safety Report 7098396-8 (Version None)
Quarter: 2010Q4

REPORT INFORMATION
  Report Type: 
  Country: None (occurrence: None)
  Receive Date: 20101112
  Receipt Date: 20101104
  Transmission Date: 20110411
  Serious: No
  Sender: FDA-Public Use
  Company Number: US-PFIZER INC-2010141002

PATIENT
  Sex: Female

DRUGS (1)
  1. XALATAN [Suspect]
     Indication: NORMAL TENSION GLAUCOMA
     Dosage: UNK
     Dates: start: 20101026, end: 20101030

REACTIONS (2)
  - CHEST DISCOMFORT [None]
  - CHEST PAIN [None]
